FAERS Safety Report 9177975 (Version 1)
Quarter: 2013Q1

REPORT INFORMATION
  Report Type: Spontaneous
  Country: US (occurrence: None)
  Receive Date: 20130315
  Receipt Date: 20130315
  Transmission Date: 20140127
  Serious: Yes (Other)
  Sender: FDA-Public Use
  Company Number: E2B_00000619

PATIENT
  Age: 11 Year
  Sex: Female
  Weight: 42.64 kg

DRUGS (2)
  1. CEFPROZIL FOR ORAL SUSPENSION USP 250 MG/5 ML (CEFPROZIL) [Suspect]
     Indication: SINUSITIS
     Dosage: 10 ML (2 IN 1 D), PER ORAL
     Route: 048
     Dates: start: 20130221, end: 20130221
  2. NOVOLOG INSULIN PEN [Suspect]

REACTIONS (3)
  - Local swelling [None]
  - Dyspnoea [None]
  - Urticaria [None]
